FAERS Safety Report 8966197 (Version 8)
Quarter: 2013Q1

REPORT INFORMATION
  Report Type: Report from Study
  Country: NL (occurrence: NL)
  Receive Date: 20121214
  Receipt Date: 20130307
  Transmission Date: 20140127
  Serious: Yes (Life-Threatening, Hospitalization, Other)
  Sender: FDA-Public Use
  Company Number: NL-GENZYME-CLOF-1002421

PATIENT
  Age: 58 Year
  Sex: Male
  Weight: 107 kg

DRUGS (14)
  1. EVOLTRA [Suspect]
     Indication: ACUTE LYMPHOCYTIC LEUKAEMIA
     Dosage: 66 MG, UNK
     Route: 042
     Dates: start: 20121027, end: 20121031
  2. METHOTREXATE [Suspect]
     Indication: ACUTE LYMPHOCYTIC LEUKAEMIA
     Dosage: 15 MG, UNK
     Route: 037
     Dates: start: 20121031
  3. METHOTREXATE [Suspect]
     Dosage: 15 MG, UNK
     Route: 037
     Dates: start: 20121103
  4. VINCRISTINE [Suspect]
     Indication: ACUTE LYMPHOCYTIC LEUKAEMIA
     Dosage: 01 MG, UNK
     Route: 042
     Dates: start: 20121103
  5. PREDNISOLONE [Suspect]
     Indication: ACUTE LYMPHOCYTIC LEUKAEMIA
     Dosage: 130 MG, UNK
     Route: 048
     Dates: start: 20121027
  6. PREDNISOLONE [Suspect]
     Dosage: 25 MG, UNK
     Route: 037
     Dates: start: 20121031
  7. PREDNISOLONE [Suspect]
     Dosage: 90 MG, UNK
     Route: 048
     Dates: start: 20121103
  8. PREDNISOLONE [Suspect]
     Dosage: 25 MG, UNK
     Route: 037
     Dates: start: 20121103
  9. ADRIAMYCIN [Suspect]
     Indication: ACUTE LYMPHOCYTIC LEUKAEMIA
     Dosage: 88 MG, UNK
     Route: 042
     Dates: start: 20121110
  10. INSULIN ASPART [Concomitant]
     Indication: BLOOD GLUCOSE INCREASED
     Dosage: UNK
     Route: 058
     Dates: start: 20121130
  11. LEVEMIR [Concomitant]
     Indication: BLOOD GLUCOSE INCREASED
     Dosage: 2 X 26 IE
     Route: 058
     Dates: start: 20121203
  12. METFORMINE [Concomitant]
     Indication: BLOOD GLUCOSE INCREASED
     Dosage: 1000 MG, BID
     Route: 048
     Dates: start: 20121130
  13. VITAMIN K [Concomitant]
     Indication: PROTHROMBIN TIME PROLONGED
     Dosage: 10 MG, QD
     Route: 048
     Dates: start: 20121130
  14. FUROSEMIDE [Concomitant]
     Indication: OEDEMA
     Dosage: 1 X 40 MG, UNK
     Route: 042
     Dates: start: 20121029

REACTIONS (4)
  - Cardiac arrest [Recovered/Resolved]
  - Generalised oedema [Recovered/Resolved]
  - Erythema [Not Recovered/Not Resolved]
  - Decubitus ulcer [Recovered/Resolved with Sequelae]
